FAERS Safety Report 5074418-0 (Version None)
Quarter: 2006Q3

REPORT INFORMATION
  Report Type: 
  Country: None (occurrence: None)
  Receive Date: 20060714
  Receipt Date: 20060323
  Transmission Date: 20061208
  Serious: No
  Sender: FDA-Public Use
  Company Number: 2006SP001355

PATIENT
  Age: 88 Year
  Sex: Female
  Weight: 72.5755 kg

DRUGS (6)
  1. LUNESTA [Suspect]
     Indication: INSOMNIA
     Dosage: 3 MG;QOD;ORAL
     Route: 048
     Dates: start: 20060320, end: 20060322
  2. PROCARDIA [Concomitant]
  3. SYNTHROID [Concomitant]
  4. DOXAZOSIN MESYLATE [Concomitant]
  5. ATORVASTATIN CALCIUM [Concomitant]
  6. VITAMINS [Concomitant]

REACTIONS (3)
  - DRUG INEFFECTIVE [None]
  - INITIAL INSOMNIA [None]
  - RESTLESSNESS [None]
